FAERS Safety Report 9356227 (Version 1)
Quarter: 2013Q2

REPORT INFORMATION
  Report Type: Spontaneous
  Country: CN (occurrence: CN)
  Receive Date: 20130619
  Receipt Date: 20130619
  Transmission Date: 20140414
  Serious: Yes (Other)
  Sender: FDA-Public Use
  Company Number: CN-GLAXOSMITHKLINE-B0899953A

PATIENT
  Age: 43 Year
  Sex: 0

DRUGS (3)
  1. ADEFOVIR DIPIVOXIL [Suspect]
     Indication: CHRONIC HEPATITIS B
  2. ENTECAVIR [Suspect]
     Indication: CHRONIC HEPATITIS B
  3. LAMIVUDINE-HBV [Suspect]
     Indication: CHRONIC HEPATITIS B
     Route: 065

REACTIONS (7)
  - Genotype drug resistance test positive [Unknown]
  - Genotype drug resistance test positive [Unknown]
  - Genotype drug resistance test positive [Unknown]
  - Genotype drug resistance test positive [Unknown]
  - Genotype drug resistance test positive [Unknown]
  - Drug ineffective [Unknown]
  - Viral load increased [Unknown]
